FAERS Safety Report 7038059-8 (Version None)
Quarter: 2010Q4

REPORT INFORMATION
  Report Type: 
  Country: None (occurrence: None)
  Receive Date: 20101011
  Receipt Date: 20101005
  Transmission Date: 20110411
  Serious: Yes (Death)
  Sender: FDA-Public Use
  Company Number: CH-PFIZER INC-2010125924

PATIENT
  Age: 89 Year
  Sex: Male

DRUGS (10)
  1. DALACIN [Suspect]
     Dosage: 600 MG, 3X/DAY
     Route: 048
     Dates: start: 20100425, end: 20100504
  2. CO-AMOXI [Suspect]
     Dosage: 1200 MG, 3X/DAY
     Route: 041
     Dates: start: 20100410, end: 20100424
  3. CIPROFLOXACIN HYDROCHLORIDE [Suspect]
     Dosage: 500 MG, 2X/DAY
     Route: 048
     Dates: start: 20100425, end: 20100504
  4. TORASEMIDE [Concomitant]
     Dosage: 5 MG, 1X/DAY
     Route: 048
  5. DIGOXIN [Concomitant]
     Dosage: 0.125 MG, 1X/DAY
     Route: 048
  6. SINTROM [Concomitant]
     Dosage: 1 MG, AS NEEDED
     Route: 048
  7. ALDACTONE [Concomitant]
     Dosage: 12.5 MG, 1X/DAY
     Route: 048
  8. ANXIOLIT [Concomitant]
     Dosage: 15 MG, 1X/DAY
     Route: 048
  9. EUTHYROX [Concomitant]
     Dosage: 50 UG, 1X/DAY
     Route: 048
     Dates: start: 20100410
  10. CONCOR [Concomitant]
     Dosage: 5 MG, 1X/DAY
     Route: 048

REACTIONS (2)
  - DRUG RASH WITH EOSINOPHILIA AND SYSTEMIC SYMPTOMS [None]
  - RASH MACULO-PAPULAR [None]
